FAERS Safety Report 19363577 (Version 1)
Quarter: 2021Q2

REPORT INFORMATION
  Report Type: Report from Study
  Country: CO (occurrence: CO)
  Receive Date: 20210602
  Receipt Date: 20210602
  Transmission Date: 20210717
  Serious: Yes (Hospitalization, Other)
  Sender: FDA-Public Use
  Company Number: CO-COLLEGIUM PHARMACEUTICAL, INC.-2021CGM00629

PATIENT
  Age: 64 Year
  Sex: Female

DRUGS (1)
  1. TAPENTADOL [Suspect]
     Active Substance: TAPENTADOL
     Indication: PAIN
     Dosage: 50 MG, EVERY 12 HOURS
     Dates: start: 20210203

REACTIONS (5)
  - Angina unstable [Unknown]
  - Drug ineffective [Unknown]
  - Osteoarthritis [Unknown]
  - Nerve conduction studies abnormal [Unknown]
  - Blood pressure increased [Unknown]
